FAERS Safety Report 8555082-2 (Version None)
Quarter: 2012Q3

REPORT INFORMATION
  Report Type: 
  Country: None (occurrence: None)
  Receive Date: 20120731
  Receipt Date: 20120723
  Transmission Date: 20120928
  Serious: Yes (Death)
  Sender: FDA-Public Use
  Company Number: GB-BAXTER-2012BAX010362

PATIENT
  Sex: Female

DRUGS (3)
  1. DIANEAL [Suspect]
     Route: 033
     Dates: start: 20110525
  2. EXTRANEAL [Suspect]
     Route: 033
     Dates: start: 20110525
  3. DIANEAL [Suspect]
     Route: 033
     Dates: start: 20110525

REACTIONS (1)
  - DEATH [None]
